FAERS Safety Report 17843309 (Version 1)
Quarter: 2020Q2

REPORT INFORMATION
  Report Type: Spontaneous
  Country: IT (occurrence: IT)
  Receive Date: 20200530
  Receipt Date: 20200530
  Transmission Date: 20200714
  Serious: Yes (Hospitalization)
  Sender: FDA-Public Use
  Company Number: IT-ACCORD-183544

PATIENT
  Age: 67 Year
  Sex: Female
  Weight: 74 kg

DRUGS (2)
  1. CARBOPLATIN AHCL [Suspect]
     Active Substance: CARBOPLATIN
     Indication: SMALL CELL LUNG CANCER
     Dosage: 10 MG / ML
     Route: 042
     Dates: start: 20200414, end: 20200414
  2. ETOPOSIDE SANDOZ [Suspect]
     Active Substance: ETOPOSIDE
     Indication: LUNG NEOPLASM MALIGNANT
     Route: 042
     Dates: start: 20200414, end: 20200416

REACTIONS (2)
  - Septic shock [Recovering/Resolving]
  - Thrombocytopenia [Recovering/Resolving]

NARRATIVE: CASE EVENT DATE: 20200424
